FAERS Safety Report 11553226 (Version 1)
Quarter: 2015Q3

REPORT INFORMATION
  Report Type: Spontaneous
  Country: US (occurrence: US)
  Receive Date: 20150925
  Receipt Date: 20150925
  Transmission Date: 20151125
  Serious: Yes (Other)
  Sender: FDA-Public Use
  Company Number: US-ABBVIE-15P-163-1466403-00

PATIENT
  Age: 27 Year

DRUGS (1)
  1. HUMIRA [Suspect]
     Active Substance: ADALIMUMAB
     Indication: CROHN^S DISEASE
     Dosage: UNK
     Route: 065

REACTIONS (11)
  - Colitis [Unknown]
  - Gastrointestinal disorder [Unknown]
  - Blood iron decreased [Unknown]
  - Fatigue [Unknown]
  - Enteritis [Unknown]
  - Intestinal scarring [Unknown]
  - Alopecia [Unknown]
  - C-reactive protein increased [Unknown]
  - Intestinal ulcer [Unknown]
  - Drug ineffective [Unknown]
  - Gastrointestinal mucosa hyperaemia [Unknown]
